FAERS Safety Report 6331775-2 (Version None)
Quarter: 2009Q4

REPORT INFORMATION
  Report Type: 
  Country: None (occurrence: None)
  Receive Date: 20090826
  Receipt Date: 20090812
  Transmission Date: 20100525
  Serious: Yes (Other)
  Sender: FDA-Public Use
  Company Number: 239004K09USA

PATIENT
  Age: 34 Year
  Sex: Male
  Weight: 113 kg

DRUGS (2)
  1. REBIF [Suspect]
     Indication: MULTIPLE SCLEROSIS
     Dosage: 44 MCG, 3 IN 1 WEEKS,SUBCUTANEOUS
     Route: 058
     Dates: start: 20030812
  2. STEROID (CORTICOSTEROIDS) [Suspect]
     Indication: STRABISMUS
     Dates: end: 20080101

REACTIONS (3)
  - ARTHRALGIA [None]
  - OSTEONECROSIS [None]
  - STRABISMUS [None]
